FAERS Safety Report 5380993-9 (Version None)
Quarter: 2007Q3

REPORT INFORMATION
  Report Type: 
  Country: None (occurrence: None)
  Receive Date: 20070702
  Receipt Date: 20061129
  Transmission Date: 20080115
  Serious: Yes (Hospitalization, Other)
  Sender: FDA-Public Use
  Company Number: PROG00206001557

PATIENT
  Sex: Female

DRUGS (1)
  1. PROGESTERONE [Suspect]
     Indication: METRORRHAGIA
     Dosage: DAILY ORAL ONE DOSE
     Route: 048
     Dates: start: 20060307, end: 20060307

REACTIONS (7)
  - ANGIOEDEMA [None]
  - ASTHENIA [None]
  - CHILLS [None]
  - DEPRESSED LEVEL OF CONSCIOUSNESS [None]
  - PYREXIA [None]
  - RASH [None]
  - VISUAL ACUITY REDUCED [None]
